FAERS Safety Report 7860001-8 (Version None)
Quarter: 2011Q4

REPORT INFORMATION
  Report Type: 
  Country: None (occurrence: None)
  Receive Date: 20111021
  Receipt Date: 20111012
  Transmission Date: 20120403
  Serious: Yes (Hospitalization)
  Sender: FDA-Public Use
  Company Number: 2011030085

PATIENT
  Age: 69 Year
  Sex: Female
  Weight: 69.4003 kg

DRUGS (8)
  1. LEVOTHYROXINE SODIUM [Concomitant]
  2. ADVAIR DISKUS 100/50 [Concomitant]
  3. SPIRIVA [Concomitant]
  4. HEPARIN [Concomitant]
  5. FOSAMAX [Concomitant]
  6. CRESTOR [Concomitant]
  7. ALBUTEROL [Concomitant]
  8. ZEMAIRA [Suspect]
     Indication: ALPHA-1 ANTI-TRYPSIN DEFICIENCY
     Dosage: 60 MG/KG (+/ 10%) 0.08 ML/KG/MIN. INTRAVENOUS (NOT OTHERWISE SPECIFIED)
     Route: 042
     Dates: start: 20100101

REACTIONS (5)
  - GASTROINTESTINAL HAEMORRHAGE [None]
  - DEVICE RELATED INFECTION [None]
  - DYSPNOEA [None]
  - BACTERAEMIA [None]
  - INFUSION RELATED REACTION [None]
